FAERS Safety Report 4867874-1 (Version None)
Quarter: 2005Q4

REPORT INFORMATION
  Report Type: 
  Country: None (occurrence: None)
  Receive Date: 20051227
  Receipt Date: 20051208
  Transmission Date: 20060501
  Serious: Yes (Life-Threatening, Hospitalization, Disabling)
  Sender: FDA-Public Use
  Company Number: JP-JNJFOC-20051002824

PATIENT
  Age: 57 Year
  Sex: Female

DRUGS (7)
  1. RISPERDAL [Suspect]
     Indication: SCHIZOPHRENIA
     Dosage: SEE IMAGE
     Route: 048
     Dates: end: 20050915
  2. RISPERDAL [Suspect]
     Indication: SCHIZOPHRENIA
     Dosage: SEE IMAGE
     Route: 048
     Dates: start: 20050916, end: 20051004
  3. ZOTEPINE (ZOTEPINE) [Concomitant]
  4. HALOPERIDOL [Concomitant]
  5. LITHIUM CARBONATE [Concomitant]
  6. VALPROATE SODIUM [Concomitant]
  7. PHENYTOIN [Concomitant]

REACTIONS (20)
  - ASCITES [None]
  - ASPARTATE AMINOTRANSFERASE INCREASED [None]
  - BLOOD CREATINE PHOSPHOKINASE INCREASED [None]
  - BLOOD LACTATE DEHYDROGENASE INCREASED [None]
  - CONDITION AGGRAVATED [None]
  - CONVERSION DISORDER [None]
  - CONVULSION [None]
  - DEPRESSED LEVEL OF CONSCIOUSNESS [None]
  - DISSEMINATED INTRAVASCULAR COAGULATION [None]
  - HALLUCINATION [None]
  - HYPERHIDROSIS [None]
  - HYPERNATRAEMIA [None]
  - HYPOCHONDRIASIS [None]
  - INFECTION [None]
  - MUSCLE RIGIDITY [None]
  - MYOGLOBINURIA [None]
  - NEUROLEPTIC MALIGNANT SYNDROME [None]
  - PYREXIA [None]
  - RESPIRATORY FAILURE [None]
  - URINE OUTPUT INCREASED [None]
